FAERS Safety Report 21968916 (Version 1)
Quarter: 2023Q1

REPORT INFORMATION
  Report Type: Spontaneous
  Country: GB (occurrence: GB)
  Receive Date: 20230208
  Receipt Date: 20230208
  Transmission Date: 20230417
  Serious: Yes (Death)
  Sender: FDA-Public Use
  Company Number: None

PATIENT
  Age: 42 Year
  Sex: Female

DRUGS (31)
  1. SIMVASTATIN [Suspect]
     Active Substance: SIMVASTATIN
     Indication: Product used for unknown indication
     Dosage: 20 MILLIGRAM, HS (AT BEDTIME)
     Route: 048
     Dates: start: 20221214, end: 20221221
  2. ACETYLCYSTEINE [Concomitant]
     Active Substance: ACETYLCYSTEINE
     Dosage: 1 GTT DROPS, QD (LEFT EYE)
     Route: 065
     Dates: start: 20221221
  3. CALCIUM CARBONATE\CHOLECALCIFEROL [Concomitant]
     Active Substance: CALCIUM CARBONATE\CHOLECALCIFEROL
     Dosage: 1.5 GRAM, BID
     Route: 048
     Dates: start: 20221213
  4. BECLOMETHASONE DIPROPIONATE [Concomitant]
     Active Substance: BECLOMETHASONE DIPROPIONATE
     Dosage: 200 MICROGRAM, BID
     Route: 055
     Dates: start: 20221220
  5. ALFENTANIL [Concomitant]
     Active Substance: ALFENTANIL
     Dosage: 17 MILLILITER
     Route: 058
     Dates: start: 20221219
  6. DEXAMETHASONE [Concomitant]
     Active Substance: DEXAMETHASONE
     Dosage: 1 GTT DROPS, QID (LEFT EYE)
     Route: 065
     Dates: start: 20221219
  7. DOBUTAMINE [Concomitant]
     Active Substance: DOBUTAMINE HYDROCHLORIDE
     Dosage: 25 MILLILITER (CENTRAL)
     Route: 042
     Dates: start: 20221220
  8. DEXTROSE [Concomitant]
     Active Substance: DEXTROSE
     Dosage: 500 MILLILITER, 1 HOUR
     Route: 042
     Dates: start: 20221219
  9. KABIVEN [Concomitant]
     Active Substance: AMINO ACIDS\ANHYDROUS DEXTROSE\CALCIUM CHLORIDE\MAGNESIUM SULFATE HEPTAHYDRATE\POTASSIUM CHLORIDE\SO
     Dosage: 2566 MILLILITER (1 BAG(S))
     Route: 042
     Dates: start: 20221219, end: 20221220
  10. FENTANYL [Concomitant]
     Active Substance: FENTANYL
     Dosage: 200 MICROGRAM (4MICROGRAM/ML. 500ML INFUSION)
     Route: 008
     Dates: start: 20221219
  11. LEVOBUPIVACAINE [Concomitant]
     Active Substance: LEVOBUPIVACAINE
     Dosage: 500 MILLILITER
     Route: 008
     Dates: start: 20221219
  12. NOREPINEPHRINE [Concomitant]
     Active Substance: NOREPINEPHRINE
     Dosage: 50 MILLILITER (CENTRAL)
     Route: 042
     Dates: start: 20221220
  13. NOVORAPID [Concomitant]
     Active Substance: INSULIN ASPART
     Dosage: 30 INTERNATIONAL UNIT(REFER TO STRUCTURED NOTES FOR REGIMEN UNSCHEDULED)
     Route: 058
     Dates: start: 20221219, end: 20221220
  14. ISONIAZID\RIFAMPIN [Concomitant]
     Active Substance: ISONIAZID\RIFAMPIN
     Indication: Tuberculosis
     Dosage: 4 DOSAGE FORM, QD (150 MG TO 100 MG)
     Route: 048
     Dates: start: 20221221
  15. TIMOLOL [Concomitant]
     Active Substance: TIMOLOL
     Dosage: 1 GTT DROPS, QD (LEFT EYE)
     Route: 065
     Dates: start: 20221220
  16. TRIMOVATE [Concomitant]
     Active Substance: CLOBETASONE BUTYRATE\NYSTATIN\OXYTETRACYCLINE CALCIUM
     Dosage: 1 DOSAGE FORM, BID
     Route: 061
     Dates: start: 20221214
  17. WARFARIN [Concomitant]
     Active Substance: WARFARIN
     Dosage: 1 DOSAGE FORM, QD (AT MIDDAY)
     Route: 048
     Dates: start: 20221220
  18. AMOXICILLIN [Concomitant]
     Active Substance: AMOXICILLIN
     Indication: Pneumonia
     Dosage: 1 GRAM, TID
     Route: 048
     Dates: start: 20221220
  19. APIXABAN [Concomitant]
     Active Substance: APIXABAN
     Indication: Atrial fibrillation
     Dosage: 5 MILLIGRAM, BID
     Route: 048
     Dates: start: 20221220
  20. ASPIRIN [Concomitant]
     Active Substance: ASPIRIN
     Dosage: 75 MILLIGRAM, AM (MORNING)
     Route: 048
     Dates: start: 20221215
  21. CLONAZEPAM [Concomitant]
     Active Substance: CLONAZEPAM
     Dosage: 500 MICROGRAM, HS (AT BEDTIME)
     Route: 048
     Dates: start: 20221220
  22. DIAZEPAM [Concomitant]
     Active Substance: DIAZEPAM
     Dosage: 5 MILLIGRAM, HS (AT BEDTIME)
     Route: 048
     Dates: start: 20221219
  23. ENOXAPARIN [Concomitant]
     Active Substance: ENOXAPARIN
     Indication: Embolism venous
     Dosage: 40 MILLIGRAM, QD (EVERY EVENING AT 6PM)
     Route: 058
     Dates: start: 20221214
  24. IBUPROFEN [Concomitant]
     Active Substance: IBUPROFEN
     Dosage: 400 MILLIGRAM, TID
     Route: 048
     Dates: start: 20221219
  25. METFORMIN [Concomitant]
     Active Substance: METFORMIN HYDROCHLORIDE
     Dosage: 500 MILLIGRAM, BID (AT 8AM AND 6PM)
     Route: 048
     Dates: start: 20221219
  26. MORPHINE SULFATE [Concomitant]
     Active Substance: MORPHINE SULFATE
     Dosage: 50 MILLILITER,(ADDITIVE FOR INFUSION) 1-2MG PRN FOR 5 DOSE(S)10 MG TWICE A DAY ORAL
     Route: 042
     Dates: start: 20221219
  27. ONDANSETRON [Concomitant]
     Active Substance: ONDANSETRON
     Dosage: 4 MILLIGRAM, TID (ORAL/ INTRAVENOUS/ INTRAMUSCULAR)
     Route: 065
     Dates: start: 20221221
  28. PREDNISOLONE [Concomitant]
     Active Substance: PREDNISOLONE
     Dosage: 15 MILLIGRAM, AM(EVERY MORNING)
     Route: 048
     Dates: start: 20221221, end: 20221222
  29. ALBUTEROL [Concomitant]
     Active Substance: ALBUTEROL
     Dosage: 200 MICROGRAM, QD
     Route: 042
     Dates: start: 20221220
  30. VALPROATE SODIUM [Concomitant]
     Active Substance: VALPROATE SODIUM
     Dosage: 500 MILLIGRAM, QD
     Route: 048
     Dates: start: 20221220
  31. SODIUM CHLORIDE [Concomitant]
     Active Substance: SODIUM CHLORIDE
     Dosage: UNK (DILUENT FOR PCA)
     Route: 065

REACTIONS (2)
  - Death [Fatal]
  - Myalgia [Not Recovered/Not Resolved]
